FAERS Safety Report 8785939 (Version 1)
Quarter: 2012Q4

REPORT INFORMATION
  Report Type: Spontaneous
  Country: US (occurrence: None)
  Receive Date: 20120905
  Receipt Date: 20120905
  Transmission Date: 20130627
  Serious: Yes (Other)
  Sender: FDA-Public Use
  Company Number: FK201202499

PATIENT
  Age: 80 Year
  Sex: Female

DRUGS (1)
  1. INDOMETHACIN [Suspect]
     Indication: PRODUCT USED FOR UNKNOWN INDICATION

REACTIONS (4)
  - Conjunctival hyperaemia [None]
  - Ulcerative keratitis [None]
  - Corneal transplant [None]
  - Keratorhexis [None]
